FAERS Safety Report 22286113 (Version 1)
Quarter: 2023Q2

REPORT INFORMATION
  Report Type: Spontaneous
  Country: US (occurrence: US)
  Receive Date: 20230505
  Receipt Date: 20230505
  Transmission Date: 20230722
  Serious: Yes (Other)
  Sender: FDA-Public Use
  Company Number: US-BRISTOL-MYERS SQUIBB COMPANY-2023-064080

PATIENT
  Age: 80 Year
  Sex: Male
  Weight: 90.72 kg

DRUGS (3)
  1. POMALYST [Suspect]
     Active Substance: POMALIDOMIDE
     Indication: Plasma cell myeloma
     Dosage: DOSE : 4 MG;     FREQ : DAILY X 21 DAYS, THEN 7 DAYS OFF
     Route: 048
     Dates: start: 202111
  2. DEXAMETHASONE [Suspect]
     Active Substance: DEXAMETHASONE
     Indication: Product used for unknown indication
     Route: 048
     Dates: start: 201711
  3. DEXAMETHASONE [Suspect]
     Active Substance: DEXAMETHASONE
     Dosage: INJECTION ON 1ST DAY OF CYCLE: NOW A 5 MIN INJECTION IN THE SIDE (WAS?INITIALLY GIVEN AS AN INFUSION

REACTIONS (1)
  - Gallbladder disorder [Unknown]
